FAERS Safety Report 16123888 (Version 1)
Quarter: 2019Q1

REPORT INFORMATION
  Report Type: Spontaneous
  Country: FR (occurrence: FR)
  Receive Date: 20190327
  Receipt Date: 20190327
  Transmission Date: 20190418
  Serious: Yes (Hospitalization)
  Sender: FDA-Public Use
  Company Number: FR-ANIPHARMA-2019-FR-000059

PATIENT
  Age: 93 Year
  Sex: Female
  Weight: 43 kg

DRUGS (11)
  1. AMLODIPINE [Suspect]
     Active Substance: AMLODIPINE BESYLATE
     Dosage: 10 MG DAILY
     Route: 048
     Dates: end: 20180910
  2. OMEPRAZOLE. [Suspect]
     Active Substance: OMEPRAZOLE
     Dosage: 10 MG UNK
     Route: 048
  3. HYDROCHLOROTHIAZIDE. [Suspect]
     Active Substance: HYDROCHLOROTHIAZIDE
     Dosage: 8 MG UNK
     Route: 048
  4. MACROGOL [Suspect]
     Active Substance: POLYETHYLENE GLYCOLS
     Dosage: 1 DF UNK
     Route: 048
  5. PROTHIADEN [Suspect]
     Active Substance: DOTHIEPIN HYDROCHLORIDE
     Dosage: 75 MG UNK
     Route: 048
  6. LORAZEPAM. [Suspect]
     Active Substance: LORAZEPAM
     Dosage: 2.5 MG DAILY
     Route: 048
     Dates: end: 20180905
  7. KARDEGIC [Suspect]
     Active Substance: ASPIRIN DL-LYSINE
     Dosage: 75 MG DAILY
     Route: 048
     Dates: end: 20180905
  8. LEVOTHYROX [Suspect]
     Active Substance: LEVOTHYROXINE
     Dosage: 50 UG/INHAL UNK
     Route: 048
  9. ATORVASTAN [Suspect]
     Active Substance: ATORVASTATIN CALCIUM
     Dosage: 10 MG DAILY
     Route: 048
     Dates: end: 20180905
  10. TRINITRINE [Suspect]
     Active Substance: NITROGLYCERIN
     Dosage: 5 MG DAILY
     Route: 048
     Dates: end: 20180905
  11. CANDESARTAN CILEXETIL. [Suspect]
     Active Substance: CANDESARTAN CILEXETIL
     Indication: HYPERTENSION
     Dosage: 12.5 MG UNK
     Route: 048

REACTIONS (3)
  - Disorientation [Recovered/Resolved]
  - Orthostatic hypotension [Recovered/Resolved]
  - Fall [Recovered/Resolved]

NARRATIVE: CASE EVENT DATE: 20180902
